FAERS Safety Report 15225606 (Version 7)
Quarter: 2022Q1

REPORT INFORMATION
  Report Type: Other
  Country: US (occurrence: None)
  Receive Date: 20180801
  Receipt Date: 20220221
  Transmission Date: 20220423
  Serious: Yes (Hospitalization, Other)
  Sender: FDA-Public Use
  Company Number: US-ROCHE-2161029

PATIENT
  Age: 43 Year
  Sex: Male
  Weight: 61.290 kg

DRUGS (9)
  1. OCREVUS [Suspect]
     Active Substance: OCRELIZUMAB
     Indication: Relapsing multiple sclerosis
     Dosage: INFUSE 300MG DAY 1; THEN 300MG DAY 15
     Route: 042
     Dates: start: 201804
  2. OCREVUS [Suspect]
     Active Substance: OCRELIZUMAB
     Indication: Primary progressive multiple sclerosis
     Route: 042
     Dates: start: 2017
  3. OCREVUS [Suspect]
     Active Substance: OCRELIZUMAB
     Route: 042
     Dates: start: 2018
  4. OXYCODONE [Concomitant]
     Active Substance: OXYCODONE
     Indication: Pain
     Dosage: MORNING, NOON, NIGHT OR 3-4 TIMES ADAY
     Route: 048
  5. OXYCODONE [Concomitant]
     Active Substance: OXYCODONE
     Indication: Bladder spasm
     Dosage: MORNING, NOON, NIGHT OR 3-4 TIMES ADAY
     Route: 048
     Dates: start: 2009
  6. OXYBUTYNIN [Concomitant]
     Active Substance: OXYBUTYNIN
  7. FLEXERIL [Concomitant]
     Active Substance: CYCLOBENZAPRINE HYDROCHLORIDE
     Route: 048
  8. ADDERALL [Concomitant]
     Active Substance: AMPHETAMINE ASPARTATE\AMPHETAMINE SULFATE\DEXTROAMPHETAMINE SACCHARATE\DEXTROAMPHETAMINE SULFATE
     Indication: Fatigue
     Route: 048
  9. RISPERDAL [Concomitant]
     Active Substance: RISPERIDONE
     Route: 048

REACTIONS (7)
  - Cystitis [Recovered/Resolved]
  - Urinary tract infection [Unknown]
  - Urinary tract infection [Not Recovered/Not Resolved]
  - Multiple sclerosis relapse [Not Recovered/Not Resolved]
  - Multiple sclerosis [Not Recovered/Not Resolved]
  - Drug ineffective [Not Recovered/Not Resolved]
  - Pain in extremity [Unknown]

NARRATIVE: CASE EVENT DATE: 20200601
